FAERS Safety Report 7951883-X (Version None)
Quarter: 2011Q4

REPORT INFORMATION
  Report Type: 
  Country: None (occurrence: None)
  Receive Date: 20111201
  Receipt Date: 20111201
  Transmission Date: 20120403
  Serious: Yes (Other)
  Sender: FDA-Public Use
  Company Number: None

PATIENT
  Age: 51 Year
  Sex: Male
  Weight: 82.554 kg

DRUGS (2)
  1. XARELTO [Suspect]
     Indication: VENTRICULAR TACHYCARDIA
     Dosage: 10MG
     Route: 048
     Dates: start: 20111119, end: 20111120
  2. XARELTO [Suspect]
     Indication: CARDIOVASCULAR EVENT PROPHYLAXIS
     Dosage: 10MG
     Route: 048
     Dates: start: 20111119, end: 20111120

REACTIONS (1)
  - HAEMATURIA [None]
